FAERS Safety Report 5328276-7 (Version None)
Quarter: 2007Q2

REPORT INFORMATION
  Report Type: 
  Country: None (occurrence: None)
  Receive Date: 20070518
  Receipt Date: 20070514
  Transmission Date: 20071010
  Serious: Yes (Hospitalization, Other)
  Sender: FDA-Public Use
  Company Number: PHEH2007US06440

PATIENT
  Age: 60 Year
  Sex: Female

DRUGS (1)
  1. ZELNORM [Suspect]
     Indication: CONSTIPATION
     Dosage: 6 MG, BID
     Route: 048
     Dates: start: 20041101

REACTIONS (5)
  - ANGINA PECTORIS [None]
  - ASTHENIA [None]
  - DYSPNOEA [None]
  - LOSS OF CONSCIOUSNESS [None]
  - SYNCOPE [None]
